FAERS Safety Report 7132211-9 (Version None)
Quarter: 2010Q4

REPORT INFORMATION
  Report Type: 
  Country: None (occurrence: None)
  Receive Date: 20101202
  Receipt Date: 20101130
  Transmission Date: 20110411
  Serious: Yes (Other)
  Sender: FDA-Public Use
  Company Number: US-BRISTOL-MYERS SQUIBB COMPANY-15412166

PATIENT
  Age: 50 Year
  Sex: Female

DRUGS (4)
  1. ABILIFY [Suspect]
     Indication: BIPOLAR DISORDER
     Dates: start: 20101124, end: 20101127
  2. LITHIUM [Concomitant]
  3. THYROID SUPPLEMENT [Concomitant]
  4. LORAZEPAM [Concomitant]

REACTIONS (3)
  - BIPOLAR DISORDER [None]
  - CONSTIPATION [None]
  - SOMNOLENCE [None]
